FAERS Safety Report 25948824 (Version 1)
Quarter: 2025Q4

REPORT INFORMATION
  Report Type: Spontaneous
  Country: EU (occurrence: None)
  Receive Date: 20251022
  Receipt Date: 20251022
  Transmission Date: 20260118
  Serious: Yes (Death, Life-Threatening, Hospitalization)
  Sender: INFORLIFE
  Company Number: EU-MLMSERVICE-20251002-PI666361-00290-1

PATIENT
  Age: 69 Year
  Sex: Male

DRUGS (1)
  1. ROPIVACAINE [Suspect]
     Active Substance: ROPIVACAINE

REACTIONS (3)
  - Pulmonary embolism [Fatal]
  - Accidental overdose [Fatal]
  - Arrhythmia [Fatal]
